FAERS Safety Report 12323619 (Version 2)
Quarter: 2016Q2

REPORT INFORMATION
  Report Type: Spontaneous
  Country: PL (occurrence: PL)
  Receive Date: 20160502
  Receipt Date: 20160516
  Transmission Date: 20160815
  Serious: Yes (Other)
  Sender: FDA-Public Use
  Company Number: PL-PFIZER INC-2016225513

PATIENT
  Age: 72 Year
  Sex: Female

DRUGS (6)
  1. AMARYL [Concomitant]
     Active Substance: GLIMEPIRIDE
     Dosage: 1 MG, 1X/DAY
  2. LYRICA [Suspect]
     Active Substance: PREGABALIN
     Indication: MENINGIOMA
  3. ACENOCUMAROL [Concomitant]
     Active Substance: ACENOCOUMAROL
     Dosage: UNK
  4. LYRICA [Suspect]
     Active Substance: PREGABALIN
     Indication: FACIAL PAIN
     Dosage: 75 MG, 1X/DAY
     Dates: start: 201509, end: 201604
  5. VITAMIN A+E [Concomitant]
     Dosage: UNK
  6. LYRICA [Suspect]
     Active Substance: PREGABALIN
     Indication: HEADACHE
     Dosage: REDUCED DOSE, 1X/DAY
     Dates: start: 20160501, end: 20160507

REACTIONS (18)
  - Back pain [Unknown]
  - Pain in jaw [Unknown]
  - Hypoaesthesia [Unknown]
  - Visual acuity reduced [Unknown]
  - Rash [Unknown]
  - Constipation [Unknown]
  - Vomiting [Unknown]
  - Cataract [Unknown]
  - Initial insomnia [Unknown]
  - Weight increased [Unknown]
  - Dizziness [Unknown]
  - Productive cough [Unknown]
  - Feeling drunk [Unknown]
  - Bone pain [Unknown]
  - Abdominal discomfort [Unknown]
  - Arthralgia [Unknown]
  - Somnolence [Unknown]
  - Burning sensation [Unknown]

NARRATIVE: CASE EVENT DATE: 2015
